FAERS Safety Report 25882563 (Version 2)
Quarter: 2025Q4

REPORT INFORMATION
  Report Type: Spontaneous
  Country: EU (occurrence: EU)
  Receive Date: 20251006
  Receipt Date: 20251015
  Transmission Date: 20260118
  Serious: Yes (Hospitalization, Other)
  Sender: SANDOZ
  Company Number: EU-PFIZER INC-PV202300161609

PATIENT
  Age: 54 Year
  Sex: Male

DRUGS (13)
  1. LAPINE T-LYMPHOCYTE IMMUNE GLOBULIN [Suspect]
     Active Substance: LAPINE T-LYMPHOCYTE IMMUNE GLOBULIN
     Indication: Bone marrow conditioning regimen
     Dosage: 2.5 MG/KG/D X 2 DAYS
     Route: 065
  2. LAPINE T-LYMPHOCYTE IMMUNE GLOBULIN [Suspect]
     Active Substance: LAPINE T-LYMPHOCYTE IMMUNE GLOBULIN
     Indication: Allogenic stem cell transplantation
  3. BUSULFAN [Suspect]
     Active Substance: BUSULFAN
     Indication: Allogenic stem cell transplantation
     Dosage: 3.2 MG/KG/D X 3 DAY
     Route: 042
  4. CYCLOSPORINE [Suspect]
     Active Substance: CYCLOSPORINE
     Indication: Prophylaxis against graft versus host disease
     Dosage: UNK
     Route: 065
  5. CYCLOSPORINE [Suspect]
     Active Substance: CYCLOSPORINE
     Indication: Acute myeloid leukaemia
  6. FLUDARABINE [Suspect]
     Active Substance: FLUDARABINE PHOSPHATE
     Indication: Bone marrow conditioning regimen
     Dosage: 40 MG/M2/D FOR 4 DAYS
     Route: 065
  7. METHOTREXATE SODIUM [Suspect]
     Active Substance: METHOTREXATE SODIUM
     Indication: Acute myeloid leukaemia
     Dosage: 3 MG/M2
     Route: 042
  8. MYCOPHENOLATE MOFETIL [Suspect]
     Active Substance: MYCOPHENOLATE MOFETIL
     Indication: Acute myeloid leukaemia
     Dosage: UNK
     Route: 065
  9. MYCOPHENOLATE MOFETIL [Suspect]
     Active Substance: MYCOPHENOLATE MOFETIL
     Indication: Prophylaxis
  10. MYCOPHENOLATE MOFETIL [Suspect]
     Active Substance: MYCOPHENOLATE MOFETIL
     Indication: Prophylaxis against graft versus host disease
  11. THIOTEPA [Suspect]
     Active Substance: THIOTEPA
     Indication: Bone marrow conditioning regimen
     Dosage: 5 MG/KG/D FOR 2 DAYS
     Route: 065
  12. VALGANCICLOVIR [Suspect]
     Active Substance: VALGANCICLOVIR
     Indication: Prophylaxis
     Dosage: UNK
     Route: 065
  13. VALGANCICLOVIR [Concomitant]
     Active Substance: VALGANCICLOVIR
     Indication: Product used for unknown indication
     Dosage: UNK
     Route: 065

REACTIONS (12)
  - Pancytopenia [Recovering/Resolving]
  - Acute graft versus host disease in skin [Recovering/Resolving]
  - Graft versus host disease in gastrointestinal tract [Recovering/Resolving]
  - Skin bacterial infection [Recovering/Resolving]
  - Viral haemorrhagic cystitis [Unknown]
  - BK virus infection [Unknown]
  - Mycobacterium haemophilum infection [Recovering/Resolving]
  - Atypical pneumonia [Unknown]
  - Cytomegalovirus infection reactivation [Recovered/Resolved]
  - Staphylococcal infection [Unknown]
  - Vocal cord thickening [Recovering/Resolving]
  - Staphylococcal skin infection [Recovering/Resolving]
